FAERS Safety Report 23508633 (Version 8)
Quarter: 2024Q1

REPORT INFORMATION
  Report Type: Spontaneous
  Country: CA (occurrence: None)
  Receive Date: 20240209
  Receipt Date: 20240221
  Transmission Date: 20240410
  Serious: Yes (Death, Hospitalization)
  Sender: FDA-Public Use
  Company Number: CA-ROCHE-3505465

PATIENT
  Age: 85 Year
  Sex: Female

DRUGS (1)
  1. RITUXIMAB [Suspect]
     Active Substance: RITUXIMAB
     Indication: Anti factor VIII antibody positive
     Route: 041

REACTIONS (3)
  - Death [Fatal]
  - Gastrointestinal haemorrhage [Fatal]
  - Off label use [Fatal]
